FAERS Safety Report 24396767 (Version 1)
Quarter: 2024Q4

REPORT INFORMATION
  Report Type: Spontaneous
  Country: US (occurrence: US)
  Receive Date: 20241004
  Receipt Date: 20241004
  Transmission Date: 20250115
  Serious: No
  Sender: MYLAN
  Company Number: US-MYLANLABS-2024M1085936

PATIENT
  Sex: Female

DRUGS (2)
  1. LIDOCAINE PATCH [Suspect]
     Active Substance: LIDOCAINE
     Indication: Muscle contractions involuntary
     Dosage: 5 PERCENT
     Route: 003
     Dates: start: 202409
  2. LIDOCAINE PATCH [Suspect]
     Active Substance: LIDOCAINE
     Indication: Pain

REACTIONS (5)
  - Application site pain [Unknown]
  - Off label use [Unknown]
  - Product packaging difficult to open [Unknown]
  - Product adhesion issue [Unknown]
  - Product design issue [Unknown]

NARRATIVE: CASE EVENT DATE: 20240101
